FAERS Safety Report 15582212 (Version 1)
Quarter: 2018Q4

REPORT INFORMATION
  Report Type: Spontaneous
  Country: US (occurrence: US)
  Receive Date: 20181102
  Receipt Date: 20181102
  Transmission Date: 20190205
  Serious: No
  Sender: FDA-Public Use
  Company Number: US-RADIUS HEALTH INC.-2018US002393

PATIENT
  Sex: Female
  Weight: 57.14 kg

DRUGS (1)
  1. TYMLOS [Suspect]
     Active Substance: ABALOPARATIDE
     Indication: OSTEOPOROSIS POSTMENOPAUSAL
     Dosage: 80 MCG, DAILY
     Route: 058
     Dates: start: 201809

REACTIONS (5)
  - Adverse event [Unknown]
  - Abdominal pain upper [Unknown]
  - Malaise [Unknown]
  - Injection site pain [Unknown]
  - Drug ineffective [Unknown]
